FAERS Safety Report 15853187 (Version 2)
Quarter: 2019Q1

REPORT INFORMATION
  Report Type: Report from Study
  Country: None (occurrence: US)
  Receive Date: 20190122
  Receipt Date: 20190311
  Transmission Date: 20190417
  Serious: Yes (Other)
  Sender: FDA-Public Use
  Company Number: US-ABBVIE-19K-163-2629786-00

PATIENT
  Age: 58 Year
  Sex: Female
  Weight: 77.18 kg

DRUGS (21)
  1. LYRICA [Concomitant]
     Active Substance: PREGABALIN
     Indication: FIBROMYALGIA
  2. HUMIRA [Suspect]
     Active Substance: ADALIMUMAB
     Indication: PSORIATIC ARTHROPATHY
     Route: 058
     Dates: start: 201611, end: 201810
  3. SIMVASTATIN. [Concomitant]
     Active Substance: SIMVASTATIN
     Indication: BLOOD CHOLESTEROL INCREASED
  4. HUMIRA [Suspect]
     Active Substance: ADALIMUMAB
     Indication: PSORIASIS
  5. CLONAZEPAM. [Concomitant]
     Active Substance: CLONAZEPAM
     Indication: FIBROMYALGIA
  6. BOTOX [Concomitant]
     Active Substance: ONABOTULINUMTOXINA
     Indication: MIGRAINE
  7. FIORICET [Concomitant]
     Active Substance: ACETAMINOPHEN\BUTALBITAL\CAFFEINE
     Indication: MIGRAINE
  8. MONTELUKAST [Concomitant]
     Active Substance: MONTELUKAST SODIUM
     Indication: SEASONAL ALLERGY
  9. VITAMIN D3 [Concomitant]
     Active Substance: CHOLECALCIFEROL
     Indication: VITAMIN SUPPLEMENTATION
  10. GLIPIZIDE. [Concomitant]
     Active Substance: GLIPIZIDE
     Indication: TYPE 2 DIABETES MELLITUS
  11. TRAMADOL. [Concomitant]
     Active Substance: TRAMADOL
     Indication: BACK PAIN
  12. TRIAMCINOLONE [Concomitant]
     Active Substance: TRIAMCINOLONE
     Indication: SKIN IRRITATION
  13. CYCLOBENZAPRINE. [Concomitant]
     Active Substance: CYCLOBENZAPRINE
     Indication: MUSCLE RELAXANT THERAPY
  14. LISINOPRIL. [Concomitant]
     Active Substance: LISINOPRIL
     Indication: RENAL IMPAIRMENT
  15. PROMETHAZINE [Concomitant]
     Active Substance: PROMETHAZINE\PROMETHAZINE HYDROCHLORIDE
     Indication: NAUSEA
  16. CLINDAMYCIN. [Concomitant]
     Active Substance: CLINDAMYCIN
     Indication: FOLLICULITIS
  17. VITAMIN D3 [Concomitant]
     Active Substance: CHOLECALCIFEROL
     Indication: VITAMIN SUPPLEMENTATION
  18. CLONAZEPAM. [Concomitant]
     Active Substance: CLONAZEPAM
     Indication: RESTLESS LEGS SYNDROME
  19. DULOXETINE. [Concomitant]
     Active Substance: DULOXETINE
     Indication: PAIN MANAGEMENT
  20. CALCIUM [Concomitant]
     Active Substance: CALCIUM
     Indication: MINERAL SUPPLEMENTATION
  21. CALCIUM [Concomitant]
     Active Substance: CALCIUM
     Indication: MINERAL SUPPLEMENTATION

REACTIONS (15)
  - Acne [Not Recovered/Not Resolved]
  - Skin disorder [Not Recovered/Not Resolved]
  - Incision site complication [Not Recovered/Not Resolved]
  - Cystitis [Recovered/Resolved with Sequelae]
  - Diarrhoea [Not Recovered/Not Resolved]
  - Fungal skin infection [Recovering/Resolving]
  - Skin papilloma [Not Recovered/Not Resolved]
  - Psoriatic arthropathy [Not Recovered/Not Resolved]
  - Scab [Not Recovered/Not Resolved]
  - Headache [Not Recovered/Not Resolved]
  - Basal cell carcinoma [Recovered/Resolved]
  - Psoriasis [Unknown]
  - Post procedural haemorrhage [Recovering/Resolving]
  - Skin disorder [Not Recovered/Not Resolved]
  - Sinusitis [Recovering/Resolving]

NARRATIVE: CASE EVENT DATE: 201810
